FAERS Safety Report 22207336 (Version 5)
Quarter: 2023Q4

REPORT INFORMATION
  Report Type: Spontaneous
  Country: US (occurrence: US)
  Receive Date: 20230413
  Receipt Date: 20231228
  Transmission Date: 20240109
  Serious: No
  Sender: FDA-Public Use
  Company Number: US-PFIZER INC-PV202300066655

PATIENT
  Age: 61 Year
  Sex: Female

DRUGS (1)
  1. IBRANCE [Suspect]
     Active Substance: PALBOCICLIB
     Dosage: 125 MG DAILY, 3 WEEKS ON 1 WEEK OFF
     Route: 048
     Dates: start: 20220923

REACTIONS (4)
  - Product dose omission issue [Unknown]
  - Malaise [Unknown]
  - Anxiety [Unknown]
  - Neoplasm progression [Unknown]
